FAERS Safety Report 8474729-2 (Version None)
Quarter: 2012Q2

REPORT INFORMATION
  Report Type: 
  Country: None (occurrence: None)
  Receive Date: 20120622
  Receipt Date: 20120531
  Transmission Date: 20120825
  Serious: Yes (Hospitalization)
  Sender: FDA-Public Use
  Company Number: 2135225-2012-00061

PATIENT
  Age: 80 Year
  Sex: Female

DRUGS (1)
  1. AETOXISCLEROL [Suspect]
     Indication: SCLEROTHERAPY
     Dosage: IV
     Route: 042
     Dates: start: 20120502

REACTIONS (5)
  - HEADACHE [None]
  - DYSPHEMIA [None]
  - DISORIENTATION [None]
  - BALANCE DISORDER [None]
  - AMNESIA [None]
